FAERS Safety Report 14143777 (Version 3)
Quarter: 2018Q1

REPORT INFORMATION
  Report Type: Report from Study
  Country: US (occurrence: US)
  Receive Date: 20171031
  Receipt Date: 20180221
  Transmission Date: 20180508
  Serious: Yes (Other)
  Sender: FDA-Public Use
  Company Number: US-UCBSA-2017020730

PATIENT
  Sex: Male
  Weight: 72 kg

DRUGS (4)
  1. DILANTIN [Suspect]
     Active Substance: PHENYTOIN
     Indication: PRODUCT USED FOR UNKNOWN INDICATION
     Dosage: UNK
  2. LEVETIRACETAM. [Suspect]
     Active Substance: LEVETIRACETAM
     Indication: EPILEPSY
     Dosage: STRENGTH 1000 MG
  3. VIMPAT [Suspect]
     Active Substance: LACOSAMIDE
     Indication: GENERALISED TONIC-CLONIC SEIZURE
     Dosage: STRENGTH: 100 MG; CUTTING OLD RX IN HALF TO MEET HIS SONS CURRENT STRENGTH
  4. VIMPAT [Suspect]
     Active Substance: LACOSAMIDE
     Indication: IDIOPATHIC GENERALISED EPILEPSY

REACTIONS (4)
  - Intentional product misuse [Unknown]
  - Cerebellar atrophy [Unknown]
  - Fall [Unknown]
  - Seizure [Recovered/Resolved]
